FAERS Safety Report 4719147-5 (Version None)
Quarter: 2005Q3

REPORT INFORMATION
  Report Type: 
  Country: None (occurrence: None)
  Receive Date: 20050719
  Receipt Date: 20050706
  Transmission Date: 20060218
  Serious: Yes (Hospitalization)
  Sender: FDA-Public Use
  Company Number: 2005091791

PATIENT
  Age: 65 Year
  Sex: Male

DRUGS (6)
  1. VIAGRA [Suspect]
     Indication: ILL-DEFINED DISORDER
     Dosage: (1 IN 2 WK), ORAL
     Route: 048
     Dates: start: 20040626
  2. BISOPROLOL FUMARATE [Concomitant]
  3. KARDEGIC (ACETYLSALICYLATE LYSINE) [Concomitant]
  4. HYZAAR [Concomitant]
  5. ALDACTONE [Concomitant]
  6. DIGOXIN [Concomitant]

REACTIONS (7)
  - CSF WHITE BLOOD CELL COUNT POSITIVE [None]
  - DISEASE RECURRENCE [None]
  - DRUG TOXICITY [None]
  - NUCLEAR MAGNETIC RESONANCE IMAGING ABNORMAL [None]
  - OPTIC NEURITIS RETROBULBAR [None]
  - RED BLOOD CELLS CSF POSITIVE [None]
  - VISUAL ACUITY REDUCED [None]
